FAERS Safety Report 7038039-2 (Version None)
Quarter: 2010Q4

REPORT INFORMATION
  Report Type: 
  Country: None (occurrence: None)
  Receive Date: 20101011
  Receipt Date: 20100921
  Transmission Date: 20110411
  Serious: Yes (Other)
  Sender: FDA-Public Use
  Company Number: PHHY2010BR66320

PATIENT
  Age: 74 Year
  Sex: Female

DRUGS (9)
  1. METOPROLOL [Suspect]
     Dosage: 200 MG/DAY
  2. ASPIRIN [Concomitant]
     Dosage: 100 MG/DAY
  3. AMLODIPINE [Concomitant]
     Dosage: 5 MG/DAY
  4. ENALAPRIL MALEATE [Concomitant]
     Dosage: 40 MG/DAY
  5. LEVOTHYROXINE [Concomitant]
     Dosage: 125 UG/DAY
  6. CLOPIDOGREL [Concomitant]
     Dosage: 75 MG/DAY
  7. ATORVASTATIN [Concomitant]
     Dosage: 40 MG/DAY
  8. ALPRAZOLAM [Concomitant]
     Dosage: 0.5 MG, UNK
  9. PROPATYLNITRATE [Concomitant]
     Dosage: 40 MG/DAY

REACTIONS (3)
  - COUGH [None]
  - HYPERTENSION [None]
  - ISCHAEMIA [None]
